FAERS Safety Report 5045629-5 (Version None)
Quarter: 2006Q3

REPORT INFORMATION
  Report Type: 
  Country: None (occurrence: None)
  Receive Date: 20060707
  Receipt Date: 20060509
  Transmission Date: 20061208
  Serious: Yes (Hospitalization)
  Sender: FDA-Public Use
  Company Number: JP-ABBOTT-06P-087-0332951-00

PATIENT
  Sex: Female

DRUGS (7)
  1. KLARICID [Suspect]
     Indication: BRONCHITIS
     Route: 048
     Dates: start: 20060403, end: 20060412
  2. CEFTRIAXONE SODIUM [Suspect]
     Indication: BRONCHITIS
     Route: 042
     Dates: start: 20060403, end: 20060412
  3. FOSFOMYCIN [Concomitant]
     Indication: ANTIBIOTIC PROPHYLAXIS
     Dates: start: 20060412, end: 20060421
  4. CIPROFLOXACIN [Concomitant]
     Indication: ANTIBIOTIC PROPHYLAXIS
     Dates: start: 20060422, end: 20060424
  5. INSULIN [Concomitant]
     Indication: DIABETES MELLITUS MANAGEMENT
     Route: 042
     Dates: start: 20060425
  6. GLICLAZIDE [Concomitant]
     Indication: DIABETES MELLITUS NON-INSULIN-DEPENDENT
  7. GLIBENCLAMIDE [Concomitant]
     Indication: DIABETES MELLITUS NON-INSULIN-DEPENDENT

REACTIONS (6)
  - DRUG HYPERSENSITIVITY [None]
  - HEPATIC ENZYME INCREASED [None]
  - INFLAMMATION [None]
  - PYREXIA [None]
  - RASH [None]
  - TRANSAMINASES INCREASED [None]
